FAERS Safety Report 12927731 (Version 3)
Quarter: 2017Q1

REPORT INFORMATION
  Report Type: Spontaneous
  Country: US (occurrence: US)
  Receive Date: 20161109
  Receipt Date: 20170215
  Transmission Date: 20170428
  Serious: Yes (Death, Hospitalization, Other)
  Sender: FDA-Public Use
  Company Number: US-BRISTOL-MYERS SQUIBB COMPANY-BMS-2016-092807

PATIENT
  Sex: Female

DRUGS (1)
  1. OPDIVO [Suspect]
     Active Substance: NIVOLUMAB
     Indication: LUNG CANCER METASTATIC
     Dosage: 176 MG, Q2WK
     Route: 042
     Dates: start: 20160826, end: 20160922

REACTIONS (5)
  - Fall [Unknown]
  - Hip surgery [Not Recovered/Not Resolved]
  - Diplopia [Unknown]
  - Femoral neck fracture [Fatal]
  - Pneumonia [Unknown]
